FAERS Safety Report 9924710 (Version 1)
Quarter: 2014Q1

REPORT INFORMATION
  Report Type: Spontaneous
  Country: US (occurrence: None)
  Receive Date: 20140224
  Receipt Date: 20140224
  Transmission Date: 20141002
  Serious: Yes (Disabling)
  Sender: FDA-Public Use
  Company Number: None

PATIENT
  Age: 70 Year
  Sex: Male
  Weight: 77.11 kg

DRUGS (1)
  1. XIAFLEX [Suspect]
     Indication: DUPUYTREN^S CONTRACTURE
     Dosage: INJECTION INTO TENDON CORDDS

REACTIONS (4)
  - Joint range of motion decreased [None]
  - Post procedural infection [None]
  - Joint dislocation [None]
  - Scar [None]
